FAERS Safety Report 5410260-6 (Version None)
Quarter: 2007Q3

REPORT INFORMATION
  Report Type: 
  Country: None (occurrence: None)
  Receive Date: 20070808
  Receipt Date: 20070726
  Transmission Date: 20080115
  Serious: Yes (Hospitalization, Other)
  Sender: FDA-Public Use
  Company Number: 430062K07USA

PATIENT
  Age: 46 Year
  Sex: Male
  Weight: 57.1532 kg

DRUGS (2)
  1. NOVANTRONE [Suspect]
     Indication: MULTIPLE SCLEROSIS
  2. CYTOXAN [Suspect]

REACTIONS (1)
  - CARDIAC FAILURE CONGESTIVE [None]
